FAERS Safety Report 8868923 (Version 3)
Quarter: 2012Q4

REPORT INFORMATION
  Report Type: 
  Country: BR (occurrence: BR)
  Receive Date: 20121027
  Receipt Date: 20121210
  Transmission Date: 20130627
  Serious: Yes (Other)
  Sender: FDA-Public Use
  Company Number: BR-US-EMD SERONO, INC.-7130913

PATIENT
  Sex: Male

DRUGS (7)
  1. REBIF [Suspect]
     Indication: RELAPSING-REMITTING MULTIPLE SCLEROSIS
     Dates: start: 20100820
  2. SOLU-MEDROL [Suspect]
     Indication: MULTIPLE SCLEROSIS RELAPSE
  3. LITOCIL [Concomitant]
     Indication: PRODUCT USED FOR UNKNOWN INDICATION
  4. BACLOFEN [Concomitant]
     Indication: PRODUCT USED FOR UNKNOWN INDICATION
  5. IBUPROFEN [Concomitant]
     Indication: MALAISE
  6. PACO [Concomitant]
     Indication: PAIN
  7. SIMETHICONE [Concomitant]
     Indication: FLATULENCE

REACTIONS (12)
  - Nephrolithiasis [Unknown]
  - Nephrolithiasis [Not Recovered/Not Resolved]
  - Renal disorder [Unknown]
  - Constipation [Not Recovered/Not Resolved]
  - Anxiety [Unknown]
  - Renal pain [Unknown]
  - Malaise [Not Recovered/Not Resolved]
  - Pain [Not Recovered/Not Resolved]
  - Pyrexia [Not Recovered/Not Resolved]
  - Injection site erythema [Recovered/Resolved]
  - Injection site nodule [Recovered/Resolved]
  - Wrong technique in drug usage process [Unknown]
